FAERS Safety Report 21139326 (Version 1)
Quarter: 2022Q3

REPORT INFORMATION
  Report Type: Spontaneous
  Country: US (occurrence: US)
  Receive Date: 20220727
  Receipt Date: 20220727
  Transmission Date: 20221026
  Serious: No
  Sender: FDA-Public Use
  Company Number: US-PFIZER INC-PV202200030205

PATIENT
  Age: 71 Year
  Sex: Female

DRUGS (1)
  1. XELJANZ XR [Suspect]
     Active Substance: TOFACITINIB CITRATE
     Dosage: UNK

REACTIONS (7)
  - Pharyngeal swelling [Unknown]
  - Asthenia [Unknown]
  - Dyspnoea [Unknown]
  - Chills [Unknown]
  - Dysphonia [Unknown]
  - Diarrhoea [Unknown]
  - Abdominal discomfort [Unknown]
